FAERS Safety Report 8859771 (Version 1)
Quarter: 2012Q4

REPORT INFORMATION
  Report Type: Report from Study
  Country: US (occurrence: US)
  Receive Date: 20121025
  Receipt Date: 20121025
  Transmission Date: 20130627
  Serious: No
  Sender: FDA-Public Use
  Company Number: US-ABBOTT-12P-163-0979886-00

PATIENT
  Sex: Female
  Weight: 61.29 kg

DRUGS (3)
  1. LUPRON DEPOT [Suspect]
     Indication: ENDOMETRIOSIS
     Dates: start: 201202
  2. TOPOMAX [Concomitant]
     Indication: CONVULSION
  3. FLEXERIL [Concomitant]
     Indication: BACK PAIN

REACTIONS (1)
  - Headache [Not Recovered/Not Resolved]
